FAERS Safety Report 4539253-8 (Version None)
Quarter: 2004Q4

REPORT INFORMATION
  Report Type: 
  Country: None (occurrence: None)
  Receive Date: 20041228
  Receipt Date: 20041220
  Transmission Date: 20050328
  Serious: Yes (Hospitalization)
  Sender: FDA-Public Use
  Company Number: DE-JNJFOC-20041205408

PATIENT
  Age: 41 Year
  Sex: Female

DRUGS (1)
  1. INFLIXIMAB [Suspect]
     Indication: POLYARTHRITIS
     Dosage: THE PLANNED REMICADE INFUSION FOR MAY 2004 WAS NOT ADMINISTERED.
     Route: 042

REACTIONS (2)
  - CHRONIC SINUSITIS [None]
  - HELICOBACTER GASTRITIS [None]
